FAERS Safety Report 4676779-0 (Version None)
Quarter: 2005Q2

REPORT INFORMATION
  Report Type: 
  Country: None (occurrence: None)
  Receive Date: 20050527
  Receipt Date: 20050412
  Transmission Date: 20051028
  Serious: Yes (Hospitalization, Disabling)
  Sender: FDA-Public Use
  Company Number: US-MERCK-0504USA01798

PATIENT
  Age: 74 Year
  Sex: Female

DRUGS (5)
  1. COZAAR [Suspect]
     Indication: HYPERTENSION
     Route: 048
     Dates: start: 19990101
  2. COZAAR [Suspect]
     Route: 048
  3. [THERAPY UNSPECIFIED] [Concomitant]
     Route: 065
  4. PENICILLIN (UNSPECIFIED) [Concomitant]
     Route: 065
  5. ASPIRIN [Concomitant]
     Route: 065

REACTIONS (6)
  - FATIGUE [None]
  - LABILE BLOOD PRESSURE [None]
  - LACERATION [None]
  - OVERDOSE [None]
  - SYNCOPE [None]
  - VISION BLURRED [None]
